FAERS Safety Report 6098592-2 (Version None)
Quarter: 2009Q1

REPORT INFORMATION
  Report Type: 
  Country: None (occurrence: None)
  Receive Date: 20090302
  Receipt Date: 20090219
  Transmission Date: 20090719
  Serious: Yes (Hospitalization)
  Sender: FDA-Public Use
  Company Number: GB-JNJFOC-20081200567

PATIENT
  Age: 65 Year
  Sex: Male

DRUGS (6)
  1. REMICADE [Suspect]
     Indication: PSORIASIS
     Route: 042
  2. CARBAMAZEPINE [Concomitant]
  3. LANZOPRAZOLE [Concomitant]
  4. PREDNISONE [Concomitant]
  5. SIMVASTATIN [Concomitant]
  6. SLO-PHYLLIN [Concomitant]

REACTIONS (1)
  - GLOMERULONEPHRITIS MEMBRANOUS [None]
